FAERS Safety Report 8103465-7 (Version None)
Quarter: 2012Q1

REPORT INFORMATION
  Report Type: 
  Country: None (occurrence: None)
  Receive Date: 20120201
  Receipt Date: 20120126
  Transmission Date: 20120608
  Serious: Yes (Hospitalization)
  Sender: FDA-Public Use
  Company Number: DE-ROCHE-1034876

PATIENT
  Sex: Female
  Weight: 59 kg

DRUGS (2)
  1. AVASTIN [Suspect]
     Indication: COLORECTAL CANCER
     Route: 042
     Dates: start: 20110328
  2. XELODA [Suspect]
     Indication: COLORECTAL CANCER
     Route: 048
     Dates: start: 20110328, end: 20110410

REACTIONS (5)
  - MUCOSAL INFLAMMATION [None]
  - GENERAL PHYSICAL HEALTH DETERIORATION [None]
  - DIARRHOEA [None]
  - DEHYDRATION [None]
  - VOMITING [None]
